FAERS Safety Report 20619455 (Version 1)
Quarter: 2022Q1

REPORT INFORMATION
  Report Type: Spontaneous
  Country: FR (occurrence: FR)
  Receive Date: 20220322
  Receipt Date: 20220322
  Transmission Date: 20220423
  Serious: Yes (Life-Threatening, Hospitalization)
  Sender: FDA-Public Use
  Company Number: None

PATIENT
  Age: 66 Year
  Sex: Male
  Weight: 84 kg

DRUGS (2)
  1. VALIUM [Suspect]
     Active Substance: DIAZEPAM
     Indication: Delirium tremens
     Route: 065
     Dates: start: 201911, end: 201911
  2. OXAZEPAM [Suspect]
     Active Substance: OXAZEPAM
     Indication: Delirium tremens
     Route: 065
     Dates: start: 201911, end: 201911

REACTIONS (2)
  - Overdose [Unknown]
  - Coma acidotic [Recovered/Resolved]

NARRATIVE: CASE EVENT DATE: 20191123
